FAERS Safety Report 23435314 (Version 2)
Quarter: 2024Q1

REPORT INFORMATION
  Report Type: Report from Study
  Country: AR (occurrence: AR)
  Receive Date: 20240123
  Receipt Date: 20240209
  Transmission Date: 20240410
  Serious: Yes (Other)
  Sender: FDA-Public Use
  Company Number: AR-ABBVIE-5600128

PATIENT
  Age: 57 Year
  Sex: Female

DRUGS (1)
  1. SKYRIZI [Suspect]
     Active Substance: RISANKIZUMAB-RZAA
     Indication: Psoriatic arthropathy
     Dosage: FORM STRENGTH: 150 MILIGRAM
     Route: 058
     Dates: start: 20211001

REACTIONS (6)
  - Joint neoplasm [Unknown]
  - Medication error [Unknown]
  - Neoplasm skin [Unknown]
  - Blister [Unknown]
  - Skin exfoliation [Unknown]
  - Limb injury [Unknown]

NARRATIVE: CASE EVENT DATE: 20211001
